FAERS Safety Report 20223533 (Version 4)
Quarter: 2022Q2

REPORT INFORMATION
  Report Type: Other
  Country: US (occurrence: US)
  Receive Date: 20211223
  Receipt Date: 20220407
  Transmission Date: 20220721
  Serious: Yes (Hospitalization)
  Sender: FDA-Public Use
  Company Number: US-BIOVITRUM-2021US11646

PATIENT
  Age: 6 Year
  Sex: Female

DRUGS (3)
  1. KINERET [Suspect]
     Active Substance: ANAKINRA
     Indication: Rheumatoid arthritis
     Route: 058
     Dates: start: 20211207
  2. KINERET [Suspect]
     Active Substance: ANAKINRA
     Indication: Mucopolysaccharidosis
     Route: 058
     Dates: start: 20211207
  3. KINERET [Suspect]
     Active Substance: ANAKINRA
     Route: 058
     Dates: start: 20211207

REACTIONS (11)
  - Infection [Recovered/Resolved]
  - Ear infection [Unknown]
  - Ear congestion [Unknown]
  - Malaise [Unknown]
  - Injection site induration [Unknown]
  - Injection site urticaria [Unknown]
  - Injection site pain [Unknown]
  - Injection site erythema [Unknown]
  - Injection site swelling [Unknown]
  - Product dose omission issue [Unknown]
  - Off label use [Unknown]

NARRATIVE: CASE EVENT DATE: 20211207
